FAERS Safety Report 4264751-4 (Version None)
Quarter: 2004Q1

REPORT INFORMATION
  Report Type: 
  Country: None (occurrence: None)
  Receive Date: 20040102
  Receipt Date: 20030620
  Transmission Date: 20041129
  Serious: Yes (Other)
  Sender: FDA-Public Use
  Company Number: DSA_70172_2003

PATIENT
  Age: 36 Year
  Sex: Female

DRUGS (2)
  1. DARVOCET-N 100 [Suspect]
     Indication: BACK INJURY
  2. DARVOCET-N 100 [Suspect]
     Indication: JOINT INJURY

REACTIONS (6)
  - ANXIETY [None]
  - GASTROINTESTINAL INJURY [None]
  - HEPATIC TRAUMA [None]
  - OVERDOSE [None]
  - PAIN [None]
  - POLYTRAUMATISM [None]
